FAERS Safety Report 14446651 (Version 1)
Quarter: 2018Q1

REPORT INFORMATION
  Report Type: Spontaneous
  Country: US (occurrence: US)
  Receive Date: 20180126
  Receipt Date: 20180126
  Transmission Date: 20180509
  Serious: No
  Sender: FDA-Public Use
  Company Number: US-ABBVIE-17K-163-2100698-00

PATIENT
  Age: 14 Year
  Sex: Male

DRUGS (3)
  1. LIDOCAINE. [Concomitant]
     Active Substance: LIDOCAINE
     Indication: PRODUCT USED FOR UNKNOWN INDICATION
  2. HUMIRA [Suspect]
     Active Substance: ADALIMUMAB
     Indication: JUVENILE SPONDYLOARTHRITIS
     Route: 058
     Dates: start: 2011, end: 2017
  3. MTX [Concomitant]
     Active Substance: METHOTREXATE SODIUM
     Indication: JUVENILE SPONDYLOARTHRITIS

REACTIONS (3)
  - Drug effect decreased [Unknown]
  - Muscle rigidity [Unknown]
  - Injection site pain [Unknown]

NARRATIVE: CASE EVENT DATE: 2017
